FAERS Safety Report 23129334 (Version 3)
Quarter: 2023Q4

REPORT INFORMATION
  Report Type: Spontaneous
  Country: US (occurrence: US)
  Receive Date: 20231031
  Receipt Date: 20231117
  Transmission Date: 20240109
  Serious: Yes (Other)
  Sender: FDA-Public Use
  Company Number: US-TORRENT-00012941

PATIENT
  Age: 80 Year
  Sex: Male
  Weight: 88 kg

DRUGS (3)
  1. ZOLPIDEM TARTRATE [Interacting]
     Active Substance: ZOLPIDEM TARTRATE
     Indication: Product used for unknown indication
     Dosage: 10 MG OF DOSE AT 11:30 AT NIGHT
     Route: 065
     Dates: start: 20221106
  2. DIPHENHYDRAMINE [Interacting]
     Active Substance: DIPHENHYDRAMINE
     Indication: Sleep disorder
     Dosage: DOUBLE DOSES EVERY NIGHT FROM MANY MONTHS
     Route: 065
  3. LISINOPRIL [Concomitant]
     Active Substance: LISINOPRIL
     Indication: Product used for unknown indication
     Dosage: UNKNOWN
     Route: 065
     Dates: start: 20221106

REACTIONS (3)
  - Loss of consciousness [Recovered/Resolved]
  - Accident [Unknown]
  - Drug interaction [Unknown]

NARRATIVE: CASE EVENT DATE: 20221107
